FAERS Safety Report 8386463-8 (Version None)
Quarter: 2012Q2

REPORT INFORMATION
  Report Type: 
  Country: None (occurrence: None)
  Receive Date: 20120525
  Receipt Date: 20120516
  Transmission Date: 20120825
  Serious: No
  Sender: FDA-Public Use
  Company Number: US-B.I. PHARMACEUTICALS,INC./RIDGEFIELD-2012-BP-10934BP

PATIENT
  Sex: Female

DRUGS (2)
  1. ZANTAC 75 [Suspect]
     Indication: DYSPHONIA
     Dosage: 75 MG
     Route: 048
     Dates: start: 20120515, end: 20120515
  2. ASPIRIN [Concomitant]
     Indication: CEREBROVASCULAR ACCIDENT PROPHYLAXIS
     Dosage: 325 MG
     Route: 048

REACTIONS (4)
  - DIZZINESS [None]
  - PAIN IN EXTREMITY [None]
  - POLLAKIURIA [None]
  - PERIPHERAL COLDNESS [None]
